FAERS Safety Report 5062717-8 (Version None)
Quarter: 2006Q3

REPORT INFORMATION
  Report Type: 
  Country: None (occurrence: None)
  Receive Date: 20060725
  Receipt Date: 20060725
  Transmission Date: 20061208
  Serious: Yes (Other)
  Sender: FDA-Public Use
  Company Number: None

PATIENT
  Sex: Female
  Weight: 86.1834 kg

DRUGS (1)
  1. ZYRTEC [Suspect]
     Indication: ASTHMA
     Dosage: 10 MG   ONCE DAILY   PO
     Route: 048
     Dates: start: 20050101

REACTIONS (9)
  - AFFECT LABILITY [None]
  - ANXIETY [None]
  - DEPERSONALISATION [None]
  - DEPRESSION [None]
  - IRRITABILITY [None]
  - MENTAL DISORDER [None]
  - PARANOIA [None]
  - SUICIDAL IDEATION [None]
  - THINKING ABNORMAL [None]
